FAERS Safety Report 9409413 (Version 1)
Quarter: 2013Q3

REPORT INFORMATION
  Report Type: Spontaneous
  Country: US (occurrence: US)
  Receive Date: 20130719
  Receipt Date: 20130719
  Transmission Date: 20140515
  Serious: No
  Sender: FDA-Public Use
  Company Number: US-BAYER-2013-087392

PATIENT
  Age: 73 Year
  Sex: Female
  Weight: 67.12 kg

DRUGS (2)
  1. ALEVE LIQUID GELS [Suspect]
     Indication: ARTHRITIS
     Dosage: 1 DF WITH FOOD, QD
     Route: 048
     Dates: start: 201306, end: 201306
  2. ALEVE CAPLET [Suspect]
     Indication: ARTHRITIS
     Dosage: 1 DF, QD WITH FOOD
     Route: 048
     Dates: start: 2012, end: 20130712

REACTIONS (3)
  - Nightmare [Recovered/Resolved]
  - Insomnia [Recovered/Resolved]
  - Incorrect drug administration duration [None]
